FAERS Safety Report 5347407-6 (Version None)
Quarter: 2007Q2

REPORT INFORMATION
  Report Type: 
  Country: None (occurrence: None)
  Receive Date: 20070503
  Receipt Date: 20060531
  Transmission Date: 20071010
  Serious: Yes (Other)
  Sender: FDA-Public Use
  Company Number: PHEH2006US07159

PATIENT
  Age: 52 Year
  Sex: Male
  Weight: 80.7 kg

DRUGS (1)
  1. LAMISIL [Suspect]
     Indication: TINEA PEDIS
     Dosage: BID, TOPICAL
     Route: 061
     Dates: end: 20060530

REACTIONS (2)
  - PRURITUS [None]
  - RASH ERYTHEMATOUS [None]
